FAERS Safety Report 6398768-0 (Version None)
Quarter: 2009Q4

REPORT INFORMATION
  Report Type: 
  Country: None (occurrence: None)
  Receive Date: 20091013
  Receipt Date: 20091002
  Transmission Date: 20100525
  Serious: Yes (Death, Hospitalization, Other)
  Sender: FDA-Public Use
  Company Number: GB-JNJFOC-20090903442

PATIENT
  Age: 6 Year
  Sex: Male
  Weight: 105 kg

DRUGS (1)
  1. REMICADE [Suspect]
     Indication: RHEUMATOID ARTHRITIS
     Route: 042
     Dates: start: 20050805, end: 20090504

REACTIONS (1)
  - LOWER RESPIRATORY TRACT INFECTION [None]
